FAERS Safety Report 14608346 (Version 1)
Quarter: 2018Q1

REPORT INFORMATION
  Report Type: Spontaneous
  Country: US (occurrence: US)
  Receive Date: 20180306
  Receipt Date: 20180306
  Transmission Date: 20180509
  Serious: No
  Sender: FDA-Public Use
  Company Number: None

PATIENT
  Age: 59 Year
  Sex: Female
  Weight: 82.56 kg

DRUGS (7)
  1. OMEPRAZOLE. [Concomitant]
     Active Substance: OMEPRAZOLE
  2. LIPO-B INJECTION OF VITAMIN [Suspect]
     Active Substance: CHOLINE CHLORIDE\CYANOCOBALAMIN\INOSITOL\METHIONINE
     Indication: WEIGHT DECREASED
     Dosage: 1 BEDTIME/2 MORNING MOUTH
     Route: 048
     Dates: start: 20171115, end: 20171201
  3. CETIRIZINE [Concomitant]
     Active Substance: CETIRIZINE HYDROCHLORIDE
  4. ESTRADIOL. [Concomitant]
     Active Substance: ESTRADIOL
  5. IBUPROFEN/ADVIL [Concomitant]
  6. TRIAMTERENE. [Concomitant]
     Active Substance: TRIAMTERENE
  7. MELOXICAM. [Concomitant]
     Active Substance: MELOXICAM

REACTIONS (3)
  - Dyspnoea [None]
  - Cardiac flutter [None]
  - Panic reaction [None]

NARRATIVE: CASE EVENT DATE: 20171115
